FAERS Safety Report 23226399 (Version 2)
Quarter: 2023Q4

REPORT INFORMATION
  Report Type: Spontaneous
  Country: US (occurrence: US)
  Receive Date: 20231124
  Receipt Date: 20231227
  Transmission Date: 20240109
  Serious: Yes (Hospitalization, Other)
  Sender: FDA-Public Use
  Company Number: US-INCYTE CORPORATION-2023IN012168

PATIENT

DRUGS (3)
  1. JAKAFI [Suspect]
     Active Substance: RUXOLITINIB
     Dosage: 10 MILLIGRAM, QD
     Route: 048
  2. REZUROCK [Suspect]
     Active Substance: BELUMOSUDIL
     Route: 065
  3. LASIX [Suspect]
     Active Substance: FUROSEMIDE
     Route: 065

REACTIONS (6)
  - Loss of consciousness [Unknown]
  - Haemoglobin decreased [Unknown]
  - Thrombosis [Unknown]
  - Swelling [Recovering/Resolving]
  - Fluid retention [Unknown]
  - Asthenia [Unknown]

NARRATIVE: CASE EVENT DATE: 20230101
